FAERS Safety Report 10158598 (Version 2)
Quarter: 2014Q2

REPORT INFORMATION
  Report Type: Spontaneous
  Country: GB (occurrence: GB)
  Receive Date: 20140508
  Receipt Date: 20140508
  Transmission Date: 20141212
  Serious: Yes (Other)
  Sender: FDA-Public Use
  Company Number: GB-AMGEN INC.-GBRSP2014029380

PATIENT
  Age: 73 Year
  Sex: Female

DRUGS (1)
  1. ENBREL [Suspect]
     Indication: PRODUCT USED FOR UNKNOWN INDICATION
     Dosage: UNK
     Route: 065
     Dates: end: 20140306

REACTIONS (5)
  - Pneumothorax [Unknown]
  - Lung infection [Unknown]
  - Pleurisy [Unknown]
  - Dyspnoea [Unknown]
  - Pain [Unknown]
